FAERS Safety Report 20869335 (Version 2)
Quarter: 2022Q4

REPORT INFORMATION
  Report Type: Report from Study
  Country: SE (occurrence: SE)
  Receive Date: 20220524
  Receipt Date: 20221118
  Transmission Date: 20230113
  Serious: Yes (Hospitalization, Other)
  Sender: FDA-Public Use
  Company Number: SE-ABBVIE-18K-150-2303286-00

PATIENT
  Sex: Male
  Weight: 63 kg

DRUGS (16)
  1. CARBIDOPA\LEVODOPA [Suspect]
     Active Substance: CARBIDOPA\LEVODOPA
     Indication: Parkinson^s disease
     Route: 050
     Dates: start: 20150112, end: 201501
  2. CARBIDOPA\LEVODOPA [Suspect]
     Active Substance: CARBIDOPA\LEVODOPA
     Dosage: TAKES ABOUT 3-4 EXTRA DOSES DAILY.
     Route: 050
  3. CARBIDOPA\LEVODOPA [Suspect]
     Active Substance: CARBIDOPA\LEVODOPA
     Dosage: MD: 11 ML, CD: 5.1 ML/H, XD: 1.5 ML.
     Route: 050
     Dates: start: 20150127
  4. CARBIDOPA\LEVODOPA [Suspect]
     Active Substance: CARBIDOPA\LEVODOPA
     Dosage: CURRENT DOSAGE NIGHT PUMP: CONTINUOUS DOSE: 4.0 ML/H. EXTRA DOSE: 2.0 ML
     Route: 050
     Dates: start: 20221115
  5. CARBIDOPA\LEVODOPA [Suspect]
     Active Substance: CARBIDOPA\LEVODOPA
     Dosage: ED: 2ML.
     Route: 050
  6. CARBIDOPA\LEVODOPA [Suspect]
     Active Substance: CARBIDOPA\LEVODOPA
     Dosage: CURRENT DOSAGE: CONTINUOUS DOSE: 5.4 ML/H.
     Route: 050
     Dates: start: 20211108
  7. CARBIDOPA\LEVODOPA [Suspect]
     Active Substance: CARBIDOPA\LEVODOPA
     Dosage: EXTRA DOSE INCREASED FROM 2 ML TO 2.5 ML.
     Route: 050
     Dates: start: 20210524, end: 20210524
  8. CARBIDOPA\LEVODOPA [Suspect]
     Active Substance: CARBIDOPA\LEVODOPA
     Dosage: CURRENT DOSAGE: MD: 11 ML, CD 5.0 ML/H.?THERAPY DURATION: REMAINS AT 16H.
     Route: 050
     Dates: start: 20210524, end: 2021
  9. CARBIDOPA\LEVODOPA [Suspect]
     Active Substance: CARBIDOPA\LEVODOPA
     Dosage: THERAPY DURATION: 24 HOURS TREATMENT FROM TONIGHT.
     Route: 050
     Dates: start: 20221115
  10. CARBIDOPA\LEVODOPA [Suspect]
     Active Substance: CARBIDOPA\LEVODOPA
     Dosage: CONTINUOUS DOSE: 5.4 ML/H
     Route: 050
     Dates: start: 20211108
  11. CARBIDOPA\LEVODOPA [Suspect]
     Active Substance: CARBIDOPA\LEVODOPA
     Dosage: TREATMENT CONNECTED 06.30AM TO 09.00PM
     Route: 050
  12. CARBIDOPA\LEVODOPA [Suspect]
     Active Substance: CARBIDOPA\LEVODOPA
     Dosage: CURRENT DOSAGE DAY PUMP: MORNING DOSE: 2.5 ML. CONTINUOUS DOSE: 5.9 ML/H. EXTRA DOSE: 2.0 ML
     Dates: start: 20221115
  13. CARBIDOPA\LEVODOPA [Suspect]
     Active Substance: CARBIDOPA\LEVODOPA
     Dosage: CURRENT DOSAGE DAY PUMP: MORNING DOSE: 2.5 ML. CONTINUOUS DOSE: 5.9 ML/H. EXTRA DOSE: 2.0 ML
     Route: 050
     Dates: start: 20211115, end: 20211115
  14. CARBIDOPA\LEVODOPA [Suspect]
     Active Substance: CARBIDOPA\LEVODOPA
     Dosage: CURRENT DOSAGE: DAY PUMP CONNECTED 07AM TO 10PM.
     Dates: start: 20221115
  15. CARBIDOPA\LEVODOPA [Suspect]
     Active Substance: CARBIDOPA\LEVODOPA
     Dosage: CURRENT DOSAGE NIGHT PUMP: CONTINUOUS DOSE: 4.0 ML/H. EXTRA DOSE: 2.0 ML
     Route: 050
     Dates: start: 20211115
  16. BENSERAZIDE HYDROCHLORIDE\LEVODOPA [Concomitant]
     Active Substance: BENSERAZIDE HYDROCHLORIDE\LEVODOPA
     Indication: Product used for unknown indication
     Dosage: TIME INTERVAL: 0.125 DAYS

REACTIONS (7)
  - Cholecystitis [Recovering/Resolving]
  - Haemorrhage [Not Recovered/Not Resolved]
  - Walking aid user [Unknown]
  - Bile duct stone [Unknown]
  - Excessive granulation tissue [Recovered/Resolved]
  - Stoma site irritation [Not Recovered/Not Resolved]
  - Stoma site discharge [Not Recovered/Not Resolved]

NARRATIVE: CASE EVENT DATE: 20170101
